FAERS Safety Report 26122191 (Version 1)
Quarter: 2025Q4

REPORT INFORMATION
  Report Type: Spontaneous
  Country: EU (occurrence: EU)
  Receive Date: 20251204
  Receipt Date: 20251204
  Transmission Date: 20260117
  Serious: Yes (Hospitalization, Other)
  Sender: PFIZER
  Company Number: None

PATIENT
  Age: 2 Year
  Sex: Female
  Weight: 18.9 kg

DRUGS (1)
  1. VINCRISTINE [Suspect]
     Active Substance: VINCRISTINE
     Indication: Acute lymphocytic leukaemia
     Dosage: 0.98 MG, CYCLIC (5 CURES) (2 MG/2 ML)
     Route: 042
     Dates: start: 20250912, end: 20251014

REACTIONS (1)
  - IIIrd nerve paralysis [Recovered/Resolved]

NARRATIVE: CASE EVENT DATE: 20251111
